FAERS Safety Report 17513739 (Version 1)
Quarter: 2020Q1

REPORT INFORMATION
  Report Type: Spontaneous
  Country: FR (occurrence: FR)
  Receive Date: 20200308
  Receipt Date: 20200308
  Transmission Date: 20200409
  Serious: Yes (Other)
  Sender: FDA-Public Use
  Company Number: FR-AUROBINDO-AUR-APL-2020-011184

PATIENT
  Age: 64 Year
  Sex: Female

DRUGS (9)
  1. FOLINIC ACID [Concomitant]
     Active Substance: LEUCOVORIN
     Indication: METASTASES TO LIVER
     Dosage: 200 MILLIGRAM/SQ. METER
     Route: 065
     Dates: start: 200104, end: 200108
  2. FLUOROURACIL. [Concomitant]
     Active Substance: FLUOROURACIL
     Indication: METASTASES TO LIVER
     Dosage: UNK, 1 CYCLICAL
     Route: 065
     Dates: start: 2001
  3. FOLINIC ACID [Concomitant]
     Active Substance: LEUCOVORIN
     Indication: COLORECTAL CANCER METASTATIC
     Dosage: UNK 1, CYCLICAL
     Route: 065
     Dates: start: 2001
  4. OXALIPLATIN. [Suspect]
     Active Substance: OXALIPLATIN
     Dosage: UNK 1, CYCLICAL
     Route: 065
     Dates: start: 200209
  5. FLUOROURACIL. [Concomitant]
     Active Substance: FLUOROURACIL
     Dosage: 400 MILLIGRAM/SQ. METER, CYCLICAL
     Route: 040
     Dates: start: 200104, end: 200108
  6. IRINOTECAN [Concomitant]
     Active Substance: IRINOTECAN
     Indication: COLORECTAL CANCER METASTATIC
     Dosage: UNK
     Route: 065
  7. IRINOTECAN [Concomitant]
     Active Substance: IRINOTECAN
     Indication: METASTASES TO LIVER
     Dosage: UNK,1 CYCLICAL
     Route: 065
     Dates: start: 2001
  8. FLUOROURACIL. [Concomitant]
     Active Substance: FLUOROURACIL
     Dosage: 400 MILLIGRAM/SQ. METER, CYCLICAL
     Route: 040
     Dates: start: 200104, end: 200108
  9. OXALIPLATIN. [Suspect]
     Active Substance: OXALIPLATIN
     Indication: COLORECTAL CANCER METASTATIC
     Dosage: 85 MILLIGRAM/SQ. METER, CYCLICAL
     Route: 065
     Dates: start: 200104, end: 200108

REACTIONS (3)
  - Neurotoxicity [Unknown]
  - Paraesthesia [Unknown]
  - Dysaesthesia pharynx [Unknown]

NARRATIVE: CASE EVENT DATE: 2001
